FAERS Safety Report 24988976 (Version 1)
Quarter: 2025Q1

REPORT INFORMATION
  Report Type: Spontaneous
  Country: US (occurrence: US)
  Receive Date: 20250220
  Receipt Date: 20250220
  Transmission Date: 20250409
  Serious: No
  Sender: ALEXION PHARMACEUTICALS
  Company Number: US-AstraZeneca-CH-00811324A

PATIENT
  Age: 76 Year

DRUGS (1)
  1. FASENRA [Suspect]
     Active Substance: BENRALIZUMAB
     Indication: Product used for unknown indication
     Route: 065

REACTIONS (6)
  - Feeling cold [Unknown]
  - Injection site pain [Unknown]
  - Body temperature [Unknown]
  - Drug effect less than expected [Unknown]
  - Drug ineffective [Unknown]
  - Therapy change [Unknown]
